FAERS Safety Report 23315854 (Version 3)
Quarter: 2024Q1

REPORT INFORMATION
  Report Type: Report from Study
  Country: CN (occurrence: CN)
  Receive Date: 20231219
  Receipt Date: 20240122
  Transmission Date: 20240410
  Serious: No
  Sender: FDA-Public Use
  Company Number: CN-PFIZER INC-PV202300203878

PATIENT
  Age: 87 Year
  Sex: Male
  Weight: 54 kg

DRUGS (33)
  1. NIRMATRELVIR\RITONAVIR [Suspect]
     Active Substance: NIRMATRELVIR\RITONAVIR
     Indication: COVID-19
     Dosage: [NIRMATRELVIR 150MG]/[RITONAVIR 100MG], 2X/DAY (BID), PC
     Dates: start: 20220502, end: 20220511
  2. LOSARTAN POTASSIUM [Concomitant]
     Active Substance: LOSARTAN POTASSIUM
     Indication: Hypertension
     Dosage: UNK
     Route: 048
     Dates: start: 20220427, end: 20220511
  3. ATORVASTATIN CALCIUM [Concomitant]
     Active Substance: ATORVASTATIN CALCIUM
     Indication: Lipids increased
     Dosage: UNK
     Route: 048
     Dates: start: 20220427, end: 20220507
  4. ATORVASTATIN CALCIUM [Concomitant]
     Active Substance: ATORVASTATIN CALCIUM
     Dosage: UNK
     Route: 048
     Dates: start: 20220429, end: 20220429
  5. ATORVASTATIN CALCIUM [Concomitant]
     Active Substance: ATORVASTATIN CALCIUM
     Dosage: UNK
     Route: 048
     Dates: start: 20220507, end: 20220511
  6. ASPIRIN [Concomitant]
     Active Substance: ASPIRIN
     Indication: Antiplatelet therapy
     Dosage: UNK, ENTRIC-COATED
     Route: 048
     Dates: start: 20220427, end: 20220511
  7. FUROSEMIDE [Concomitant]
     Active Substance: FUROSEMIDE
     Indication: Hypertension
     Dosage: UNK
     Route: 048
     Dates: start: 20220427, end: 20220511
  8. FUROSEMIDE [Concomitant]
     Active Substance: FUROSEMIDE
     Indication: Polyuria
  9. SPIRONOLACTONE [Concomitant]
     Active Substance: SPIRONOLACTONE
     Indication: Hypertension
     Dosage: UNK
     Route: 048
     Dates: start: 20220427, end: 20220511
  10. SPIRONOLACTONE [Concomitant]
     Active Substance: SPIRONOLACTONE
     Indication: Polyuria
  11. METOPROLOL SUCCINATE [Concomitant]
     Active Substance: METOPROLOL SUCCINATE
     Indication: Heart rate abnormal
     Dosage: EXTENDED RELEASE
     Route: 048
     Dates: start: 20220427, end: 20220429
  12. METOPROLOL SUCCINATE [Concomitant]
     Active Substance: METOPROLOL SUCCINATE
     Dosage: EXTENDED RELEASE
     Route: 048
     Dates: start: 20220429, end: 20220511
  13. ISOSORBIDE MONONITRATE [Concomitant]
     Active Substance: ISOSORBIDE MONONITRATE
     Indication: Coronary artery dilatation
     Dosage: UNK
     Route: 042
     Dates: start: 20220428, end: 20220428
  14. TICAGRELOR [Concomitant]
     Active Substance: TICAGRELOR
     Indication: Antiplatelet therapy
     Dosage: UNK
     Route: 048
     Dates: start: 20220428, end: 20220428
  15. TICAGRELOR [Concomitant]
     Active Substance: TICAGRELOR
     Dosage: UNK
     Route: 048
     Dates: start: 20220428, end: 20220506
  16. TICAGRELOR [Concomitant]
     Active Substance: TICAGRELOR
     Dosage: UNK
     Route: 048
     Dates: start: 20220506, end: 20220511
  17. SODIUM BICARBONATE [Concomitant]
     Active Substance: SODIUM BICARBONATE
     Indication: Prophylaxis
     Dosage: UNK
     Dates: start: 20220429, end: 20220429
  18. SODIUM BICARBONATE [Concomitant]
     Active Substance: SODIUM BICARBONATE
     Dosage: UNK
     Route: 048
     Dates: start: 20220429, end: 20220430
  19. SODIUM BICARBONATE [Concomitant]
     Active Substance: SODIUM BICARBONATE
     Dosage: UNK
     Route: 048
     Dates: start: 20220429, end: 20220511
  20. ISOSORBIDE MONONITRATE [Concomitant]
     Active Substance: ISOSORBIDE MONONITRATE
     Indication: Coronary artery dilatation
     Dosage: SUSTAINED RELEASE
     Route: 048
     Dates: start: 20220429, end: 20220511
  21. ISOSORBIDE MONONITRATE [Concomitant]
     Active Substance: ISOSORBIDE MONONITRATE
     Indication: Crown lengthening
     Dosage: SUSTAINED RELEASE
     Route: 048
     Dates: start: 20220430, end: 20220430
  22. LEUCOGEN [Concomitant]
     Active Substance: LEUCOGEN
     Indication: White blood cell count decreased
     Dosage: UNK
     Route: 048
     Dates: start: 20220501, end: 20220511
  23. THYMUS [THYMUS GLAND] [Concomitant]
     Indication: Immunomodulatory therapy
     Dosage: UNK
     Route: 058
     Dates: start: 20220508, end: 20220508
  24. THYMUS [THYMUS GLAND] [Concomitant]
     Dosage: UNK
     Route: 058
     Dates: start: 20220508, end: 20220511
  25. HERBALS [Concomitant]
     Active Substance: HERBALS
     Indication: Detoxification
     Dosage: UNK
     Route: 048
     Dates: start: 20220427, end: 20220427
  26. HERBALS [Concomitant]
     Active Substance: HERBALS
     Dosage: UNK
     Route: 048
     Dates: start: 20220510
  27. HERBALS\MENTHOL [Concomitant]
     Active Substance: HERBALS\MENTHOL
     Indication: Detoxification
     Dosage: UNK
     Route: 048
     Dates: start: 20220427, end: 20220427
  28. HERBALS\MENTHOL [Concomitant]
     Active Substance: HERBALS\MENTHOL
     Dosage: UNK
     Route: 048
     Dates: start: 20220502, end: 20220502
  29. LACTULOSE [Concomitant]
     Active Substance: LACTULOSE
     Indication: Prophylaxis
     Dosage: UNK
     Route: 048
  30. GLYCERIN [Concomitant]
     Active Substance: GLYCERIN
     Indication: Prophylaxis
     Dosage: UNK
     Route: 054
     Dates: start: 20220501, end: 20220501
  31. GLYCERIN [Concomitant]
     Active Substance: GLYCERIN
     Dosage: UNK
     Route: 054
     Dates: start: 20220502, end: 20220502
  32. XUAN FEI ZHI SOU [Concomitant]
     Indication: Cough
     Dosage: MIXTURE
     Route: 048
     Dates: start: 20220505, end: 20220505
  33. XUAN FEI ZHI SOU [Concomitant]
     Dosage: MIXTURE
     Route: 048
     Dates: start: 20220510, end: 20220510

REACTIONS (1)
  - Overdose [Unknown]
